FAERS Safety Report 14402928 (Version 3)
Quarter: 2020Q1

REPORT INFORMATION
  Report Type: Spontaneous
  Country: US (occurrence: US)
  Receive Date: 20180117
  Receipt Date: 20200211
  Transmission Date: 20200409
  Serious: Yes (Other)
  Sender: FDA-Public Use
  Company Number: US-PFIZER INC-2018019978

PATIENT
  Age: 75 Year
  Sex: Male
  Weight: 69 kg

DRUGS (3)
  1. RAPAMUNE [Suspect]
     Active Substance: SIROLIMUS
     Indication: PROPHYLAXIS AGAINST TRANSPLANT REJECTION
     Dosage: 2 MG, DAILY
     Route: 048
     Dates: start: 20171005, end: 20171210
  2. RAPAMUNE [Suspect]
     Active Substance: SIROLIMUS
     Indication: ANGIOPATHY
  3. MYCOPHENOLATE [Concomitant]
     Active Substance: MYCOPHENOLIC ACID
     Indication: HEART TRANSPLANT REJECTION
     Dosage: UNK
     Dates: start: 20000903

REACTIONS (8)
  - Poor quality sleep [Unknown]
  - Off label use [Unknown]
  - Product use in unapproved indication [Unknown]
  - Nocturia [Recovered/Resolved]
  - Oropharyngeal pain [Recovered/Resolved]
  - Proteinuria [Recovered/Resolved]
  - Rash pruritic [Recovered/Resolved]
  - Drug hypersensitivity [Unknown]

NARRATIVE: CASE EVENT DATE: 20171005
